FAERS Safety Report 10553537 (Version 1)
Quarter: 2014Q4

REPORT INFORMATION
  Report Type: Spontaneous
  Country: RU (occurrence: None)
  Receive Date: 20141028
  Receipt Date: 20141028
  Transmission Date: 20150529
  Serious: Yes (Other)
  Sender: FDA-Public Use
  Company Number: B0996609A

PATIENT
  Sex: Female

DRUGS (5)
  1. ABACAVIR [Suspect]
     Active Substance: ABACAVIR
     Indication: HIV INFECTION
  2. ISENTRESS [Suspect]
     Active Substance: RALTEGRAVIR POTASSIUM
     Indication: HIV INFECTION
  3. REYATAZ [Suspect]
     Active Substance: ATAZANAVIR SULFATE
     Indication: HIV INFECTION
  4. STOCRIN [Suspect]
     Active Substance: EFAVIRENZ
     Indication: HIV INFECTION
  5. COMBIVIR [Suspect]
     Active Substance: LAMIVUDINE\ZIDOVUDINE
     Indication: HIV INFECTION
     Dates: end: 20140918

REACTIONS (6)
  - Fat redistribution [None]
  - Nausea [None]
  - Decreased appetite [None]
  - Altered state of consciousness [None]
  - Hypersensitivity [None]
  - Jaundice [None]
